FAERS Safety Report 8433444-1 (Version None)
Quarter: 2012Q2

REPORT INFORMATION
  Report Type: 
  Country: None (occurrence: None)
  Receive Date: 20120613
  Receipt Date: 20120504
  Transmission Date: 20120825
  Serious: No
  Sender: FDA-Public Use
  Company Number: US-ASTRAZENECA-2012SE29123

PATIENT

DRUGS (1)
  1. FASLODEX [Suspect]
     Dosage: 2 INJECTIONS 250/5ML
     Route: 030

REACTIONS (4)
  - ABSCESS [None]
  - GAIT DISTURBANCE [None]
  - INJECTION SITE ERYTHEMA [None]
  - PAIN [None]
